FAERS Safety Report 6062623-6 (Version None)
Quarter: 2009Q1

REPORT INFORMATION
  Report Type: 
  Country: None (occurrence: None)
  Receive Date: 20090203
  Receipt Date: 20090126
  Transmission Date: 20090719
  Serious: Yes (Other)
  Sender: FDA-Public Use
  Company Number: BR-PFIZER INC-2008097985

PATIENT

DRUGS (6)
  1. VIAGRA [Suspect]
     Indication: ERECTILE DYSFUNCTION
     Route: 048
     Dates: start: 20000101
  2. ATENOLOL [Concomitant]
  3. SUSTRATE [Concomitant]
  4. VASTAREL [Concomitant]
  5. FENOFIBRATE [Concomitant]
  6. ACETYLSALICYLIC ACID SRT [Concomitant]

REACTIONS (4)
  - CORONARY ARTERY OCCLUSION [None]
  - DRY MOUTH [None]
  - ERYTHEMA [None]
  - FEELING HOT [None]
